FAERS Safety Report 7146749-1 (Version None)
Quarter: 2010Q4

REPORT INFORMATION
  Report Type: 
  Country: None (occurrence: None)
  Receive Date: 20101208
  Receipt Date: 20101129
  Transmission Date: 20110411
  Serious: Yes (Other)
  Sender: FDA-Public Use
  Company Number: JP-PFIZER INC-2010158778

PATIENT

DRUGS (1)
  1. AZULFIDINE [Suspect]

REACTIONS (2)
  - DRUG ERUPTION [None]
  - TYPE 1 DIABETES MELLITUS [None]
